FAERS Safety Report 5419607-8 (Version None)
Quarter: 2007Q3

REPORT INFORMATION
  Report Type: 
  Country: None (occurrence: None)
  Receive Date: 20070816
  Receipt Date: 20070816
  Transmission Date: 20080115
  Serious: No
  Sender: FDA-Public Use
  Company Number: None

PATIENT
  Sex: Female
  Weight: 59.4212 kg

DRUGS (3)
  1. LEVOTHYROXINE 0.112 MG [Suspect]
     Indication: POST PROCEDURAL HYPOTHYROIDISM
     Dosage: 1 1/2 TABS DAILY AT BEDTIME PO
     Route: 048
     Dates: start: 20070629, end: 20070723
  2. TOPROL-XL [Concomitant]
  3. VICODIN [Concomitant]

REACTIONS (8)
  - BLOOD THYROID STIMULATING HORMONE INCREASED [None]
  - DIARRHOEA [None]
  - FATIGUE [None]
  - FEELING JITTERY [None]
  - FREQUENT BOWEL MOVEMENTS [None]
  - GASTROENTERITIS RADIATION [None]
  - MALABSORPTION [None]
  - NERVOUSNESS [None]
